FAERS Safety Report 24394106 (Version 2)
Quarter: 2024Q4

REPORT INFORMATION
  Report Type: Spontaneous
  Country: BR (occurrence: BR)
  Receive Date: 20241003
  Receipt Date: 20241031
  Transmission Date: 20250114
  Serious: Yes (Hospitalization)
  Sender: PFIZER
  Company Number: BR-PFIZER INC-PV202400128082

PATIENT
  Age: 74 Year
  Sex: Female

DRUGS (1)
  1. TAFAMIDIS MEGLUMINE [Suspect]
     Active Substance: TAFAMIDIS MEGLUMINE
     Dosage: UNK

REACTIONS (3)
  - Chest pain [Unknown]
  - Hypotension [Recovering/Resolving]
  - Drug intolerance [Unknown]
